FAERS Safety Report 15752381 (Version 1)
Quarter: 2018Q4

REPORT INFORMATION
  Report Type: Spontaneous
  Country: US (occurrence: ZA)
  Receive Date: 20181221
  Receipt Date: 20181221
  Transmission Date: 20190205
  Serious: Yes (Death)
  Sender: FDA-Public Use
  Company Number: ZA-STI PHARMA LLC-2060496

PATIENT
  Age: 28 Year
  Sex: Female

DRUGS (2)
  1. PYRAZINAMIDE. [Suspect]
     Active Substance: PYRAZINAMIDE
     Route: 048
     Dates: start: 20180626, end: 20181108
  2. ETHAMBUTOL HYDROCHLORIDE. [Suspect]
     Active Substance: ETHAMBUTOL HYDROCHLORIDE
     Route: 048
     Dates: start: 20180626, end: 20181108

REACTIONS (1)
  - Sepsis [Fatal]

NARRATIVE: CASE EVENT DATE: 20181108
